FAERS Safety Report 7280919-7 (Version None)
Quarter: 2011Q1

REPORT INFORMATION
  Report Type: 
  Country: None (occurrence: None)
  Receive Date: 20110208
  Receipt Date: 20110127
  Transmission Date: 20110831
  Serious: Yes (Life-Threatening, Hospitalization)
  Sender: FDA-Public Use
  Company Number: JP-AMGEN-JPNCT2010007111

PATIENT
  Age: 27 Year
  Sex: Male
  Weight: 46 kg

DRUGS (29)
  1. FLUOROURACIL [Suspect]
     Indication: COLORECTAL CANCER
     Dosage: UNK MG/M2, UNK
     Route: 042
     Dates: start: 20101110
  2. CALCIUM LEVOFOLINATE [Suspect]
     Indication: COLORECTAL CANCER
     Route: 041
     Dates: start: 20101110
  3. FIRSTCIN [Suspect]
     Indication: INFECTION
     Dosage: 1 G, TID
     Route: 042
     Dates: start: 20101117, end: 20101118
  4. PACETCOOL [Suspect]
     Indication: INFECTION
     Dosage: 1 G, BID
     Route: 042
     Dates: start: 20101105, end: 20101117
  5. MEROPEN                            /01250501/ [Suspect]
     Route: 042
     Dates: start: 20101119, end: 20101126
  6. GAMOFA [Concomitant]
     Route: 042
     Dates: start: 20101110, end: 20101110
  7. NEUTROGIN [Concomitant]
     Route: 042
  8. PANITUMUMAB [Suspect]
     Dosage: 6 MG/KG, Q2WK
     Route: 041
     Dates: start: 20101201
  9. FIRSTCIN [Suspect]
     Route: 042
     Dates: start: 20101117, end: 20101118
  10. DUROTEP [Concomitant]
     Route: 062
  11. HIRUDOID                           /00723702/ [Concomitant]
     Route: 062
  12. GAMOFA [Concomitant]
     Indication: PREMEDICATION
     Dosage: 20 MG, QD
     Route: 042
     Dates: start: 20101110, end: 20101110
  13. PRIMPERAN                          /00041901/ [Concomitant]
     Route: 042
     Dates: start: 20101109, end: 20101109
  14. FLURBIPROFEN [Concomitant]
     Indication: PAIN
     Dosage: 50 MG, ONE TIME DOSE
     Route: 042
     Dates: start: 20101115, end: 20101118
  15. ELPLAT [Suspect]
     Indication: COLORECTAL CANCER
     Route: 041
     Dates: start: 20101110
  16. CEFOTIAM HYDROCHLORIDE [Concomitant]
     Dosage: UNK
     Dates: start: 20101105
  17. MEROPEN                            /01250501/ [Suspect]
     Indication: INFECTION
     Dosage: 0.5 G, TID
     Route: 042
     Dates: start: 20101119, end: 20101126
  18. GRANISETRON                        /01178102/ [Concomitant]
     Indication: PREMEDICATION
     Dosage: 3 MG, QD
     Route: 042
     Dates: start: 20101110, end: 20101112
  19. FLURBIPROFEN [Concomitant]
     Route: 042
     Dates: start: 20101115, end: 20101118
  20. HIRUDOID                           /00723702/ [Concomitant]
     Route: 062
  21. PANITUMUMAB [Suspect]
     Indication: COLORECTAL CANCER
     Dosage: 6 MG/KG, Q2WK
     Route: 041
     Dates: start: 20101110, end: 20101118
  22. CORTICOSTEROIDS [Concomitant]
     Indication: PROPHYLAXIS
     Route: 065
  23. PRIMPERAN                          /00041901/ [Concomitant]
     Indication: NAUSEA
     Dosage: 10 MG, QD
     Route: 042
     Dates: start: 20101109, end: 20101109
  24. OXINORM                            /00547301/ [Concomitant]
     Route: 048
  25. EMEND                              /01627301/ [Concomitant]
     Route: 048
  26. ANTIHISTAMINES [Concomitant]
     Indication: PROPHYLAXIS
     Route: 065
  27. PACETCOOL [Suspect]
     Route: 042
     Dates: start: 20101105, end: 20101117
  28. FLUOROURACIL [Suspect]
     Route: 041
     Dates: start: 20101110
  29. GRANISETRON                        /01178102/ [Concomitant]
     Route: 042
     Dates: start: 20101110, end: 20101112

REACTIONS (4)
  - PSEUDOMEMBRANOUS COLITIS [None]
  - DISSEMINATED INTRAVASCULAR COAGULATION [None]
  - PLATELET COUNT DECREASED [None]
  - WHITE BLOOD CELL COUNT DECREASED [None]
